FAERS Safety Report 23016455 (Version 1)
Quarter: 2023Q4

REPORT INFORMATION
  Report Type: Spontaneous
  Country: SI (occurrence: SI)
  Receive Date: 20231002
  Receipt Date: 20231002
  Transmission Date: 20240109
  Serious: Yes (Death, Hospitalization)
  Sender: FDA-Public Use
  Company Number: SI-ABBVIE-5430478

PATIENT
  Age: 62 Year
  Sex: Female
  Weight: 40 kg

DRUGS (6)
  1. CARBIDOPA\LEVODOPA [Suspect]
     Active Substance: CARBIDOPA\LEVODOPA
     Indication: Parkinson^s disease
     Dosage: AS PER NEUROLOGIST RECOMMENDATION
     Route: 050
     Dates: start: 201906
  2. CARBIDOPA\LEVODOPA [Suspect]
     Active Substance: CARBIDOPA\LEVODOPA
  3. QUETIAPINE FUMARATE [Concomitant]
     Active Substance: QUETIAPINE FUMARATE
     Indication: Product used for unknown indication
  4. PERINDOPRIL [Concomitant]
     Active Substance: PERINDOPRIL
     Indication: Product used for unknown indication
     Dosage: 8 MILLIGRAM
     Route: 048
     Dates: start: 2019
  5. amlopin [Concomitant]
     Indication: Product used for unknown indication
     Route: 048
     Dates: start: 2019
  6. PANTOPRAZOLE SODIUM [Concomitant]
     Active Substance: PANTOPRAZOLE SODIUM
     Indication: Product used for unknown indication
     Route: 048
     Dates: start: 2017

REACTIONS (2)
  - Microcytic anaemia [Fatal]
  - Pneumonia aspiration [Fatal]

NARRATIVE: CASE EVENT DATE: 20230811
